FAERS Safety Report 8273339-X (Version None)
Quarter: 2012Q2

REPORT INFORMATION
  Report Type: 
  Country: None (occurrence: None)
  Receive Date: 20120411
  Receipt Date: 20120406
  Transmission Date: 20120825
  Serious: Yes (Death, Hospitalization)
  Sender: FDA-Public Use
  Company Number: PHHY2012JP029986

PATIENT
  Age: 87 Year
  Sex: Male

DRUGS (1)
  1. RASILEZ [Suspect]
     Indication: HYPERTENSION
     Dosage: 150 MG, DAILY
     Route: 048
     Dates: start: 20110906, end: 20120206

REACTIONS (4)
  - CEREBROVASCULAR DISORDER [None]
  - DEHYDRATION [None]
  - PNEUMONIA ASPIRATION [None]
  - CEREBRAL INFARCTION [None]
